FAERS Safety Report 8844299 (Version 2)
Quarter: 2013Q2

REPORT INFORMATION
  Report Type: Spontaneous
  Country: US (occurrence: US)
  Receive Date: 20121017
  Receipt Date: 20130504
  Transmission Date: 20140414
  Serious: Yes (Other)
  Sender: FDA-Public Use
  Company Number: US-009507513-1210USA002807

PATIENT
  Age: 59 Year
  Sex: Female

DRUGS (3)
  1. REBETOL [Suspect]
     Indication: HEPATITIS C
     Dosage: UNK
     Dates: start: 201111, end: 201201
  2. VICTRELIS [Suspect]
     Indication: HEPATITIS C
     Dosage: UNK
     Dates: start: 201112, end: 201201
  3. PEGASYS [Concomitant]
     Indication: HEPATITIS C
     Dosage: UNK
     Dates: start: 201111, end: 201201

REACTIONS (14)
  - Varices oesophageal [Unknown]
  - Hepatic cirrhosis [Unknown]
  - Hepatitis C RNA decreased [Unknown]
  - Nausea [Unknown]
  - Fatigue [Unknown]
  - Headache [Unknown]
  - White blood cell count decreased [Unknown]
  - Anaemia [Recovered/Resolved]
  - Blood calcium decreased [Unknown]
  - Blood calcium decreased [Unknown]
  - Globulins increased [Unknown]
  - Globulins increased [Unknown]
  - Albumin globulin ratio decreased [Unknown]
  - Albumin globulin ratio decreased [Unknown]
